FAERS Safety Report 17898427 (Version 3)
Quarter: 2020Q3

REPORT INFORMATION
  Report Type: Spontaneous
  Country: SE (occurrence: SE)
  Receive Date: 20200616
  Receipt Date: 20200728
  Transmission Date: 20201103
  Serious: Yes (Other)
  Sender: FDA-Public Use
  Company Number: SE-ROCHE-2621890

PATIENT

DRUGS (1)
  1. XOLAIR [Suspect]
     Active Substance: OMALIZUMAB
     Indication: PRODUCT USED FOR UNKNOWN INDICATION
     Dosage: 105 MG, BIW
     Route: 065
     Dates: start: 20200506

REACTIONS (3)
  - Angioedema [Unknown]
  - Rash [Unknown]
  - Urticaria [Not Recovered/Not Resolved]
